FAERS Safety Report 11414677 (Version 1)
Quarter: 2015Q3

REPORT INFORMATION
  Report Type: Spontaneous
  Country: US (occurrence: US)
  Receive Date: 20150825
  Receipt Date: 20150825
  Transmission Date: 20151125
  Serious: No
  Sender: FDA-Public Use
  Company Number: US-AMGEN-USASP2015085448

PATIENT
  Age: 65 Year
  Sex: Female

DRUGS (1)
  1. ENBREL [Suspect]
     Active Substance: ETANERCEPT
     Indication: PRODUCT USED FOR UNKNOWN INDICATION
     Dosage: 50 MG, TWICE A WEEK
     Route: 065

REACTIONS (5)
  - Drug dose omission [Unknown]
  - Skin disorder [Unknown]
  - Anxiety [Unknown]
  - Incorrect product storage [Unknown]
  - Stress [Unknown]

NARRATIVE: CASE EVENT DATE: 201508
